FAERS Safety Report 10090160 (Version 1)
Quarter: 2014Q2

REPORT INFORMATION
  Report Type: Spontaneous
  Country: US (occurrence: None)
  Receive Date: 20140417
  Receipt Date: 20140417
  Transmission Date: 20141212
  Serious: Yes (Hospitalization)
  Sender: FDA-Public Use
  Company Number: KV201400061

PATIENT
  Age: 35 Year
  Sex: Female

DRUGS (6)
  1. MAKENA [Suspect]
     Indication: PREMATURE DELIVERY
     Dosage: 250MG, SINGLE, INTRAMUSCULAR
     Route: 030
     Dates: start: 20140403
  2. LABETALOL (LABETALOL) [Concomitant]
  3. LOVENOX (ENOXAPARIN SODIUM) [Concomitant]
  4. PRENATAL VITAMINS [Concomitant]
  5. IRON (IRON) [Concomitant]
  6. COLACE (DOCUSATE SODIUM) [Concomitant]

REACTIONS (4)
  - Vaginal haemorrhage [None]
  - Premature labour [None]
  - Premature delivery [None]
  - Off label use [None]
